FAERS Safety Report 6429024-X (Version None)
Quarter: 2009Q4

REPORT INFORMATION
  Report Type: 
  Country: None (occurrence: None)
  Receive Date: 20091105
  Receipt Date: 20091028
  Transmission Date: 20100525
  Serious: Yes (Hospitalization)
  Sender: FDA-Public Use
  Company Number: FR-SANOFI-SYNTHELABO-A02200902843

PATIENT
  Sex: Female
  Weight: 38 kg

DRUGS (9)
  1. MOPRAL [Concomitant]
     Indication: DRUG USE FOR UNKNOWN INDICATION
     Route: 048
  2. COVERSYL [Concomitant]
     Indication: DRUG USE FOR UNKNOWN INDICATION
     Route: 048
  3. AMLODIPINE [Concomitant]
     Indication: DRUG USE FOR UNKNOWN INDICATION
     Route: 048
  4. ACEBUTOLOL [Concomitant]
     Indication: DRUG USE FOR UNKNOWN INDICATION
     Route: 048
  5. KARDEGIC [Concomitant]
     Indication: DRUG USE FOR UNKNOWN INDICATION
     Route: 048
  6. TAHOR [Suspect]
     Indication: DYSLIPIDAEMIA
     Route: 048
     Dates: end: 20090917
  7. DAPSONE [Suspect]
     Indication: LUPUS-LIKE SYNDROME
     Route: 048
     Dates: start: 20090830, end: 20090914
  8. PLAQUENIL [Suspect]
     Indication: LUPUS-LIKE SYNDROME
     Route: 048
     Dates: start: 20090501, end: 20090918
  9. PLAVIX [Suspect]
     Indication: THROMBOSIS PROPHYLAXIS
     Route: 048
     Dates: start: 20090828

REACTIONS (4)
  - CHOLESTASIS [None]
  - CYTOLYTIC HEPATITIS [None]
  - HAEMOLYTIC ANAEMIA [None]
  - METHAEMOGLOBINAEMIA [None]
